FAERS Safety Report 9925958 (Version 1)
Quarter: 2014Q1

REPORT INFORMATION
  Report Type: Spontaneous
  Country: US (occurrence: US)
  Receive Date: 20140226
  Receipt Date: 20140226
  Transmission Date: 20141002
  Serious: No
  Sender: FDA-Public Use
  Company Number: US-BRACCO-009752

PATIENT
  Age: 56 Year
  Sex: Female

DRUGS (5)
  1. ISOVUE 370 [Suspect]
     Indication: COMPUTERISED TOMOGRAM ABDOMEN
     Route: 042
     Dates: start: 20130621, end: 20130621
  2. AMBIEN [Concomitant]
  3. ASTELIN [Concomitant]
  4. NASAL PREPARATIONS [Concomitant]
  5. ESTRACE [Concomitant]

REACTIONS (2)
  - Tremor [Recovered/Resolved]
  - Respiratory rate increased [Recovered/Resolved]
